FAERS Safety Report 6638282-8 (Version None)
Quarter: 2010Q1

REPORT INFORMATION
  Report Type: 
  Country: None (occurrence: None)
  Receive Date: 20100317
  Receipt Date: 20100310
  Transmission Date: 20100710
  Serious: Yes (Other)
  Sender: FDA-Public Use
  Company Number: US-JNJCH-2010006300

PATIENT
  Age: 69 Year
  Sex: Male
  Weight: 104.3 kg

DRUGS (1)
  1. SUDAFED 12 HOUR [Suspect]
     Indication: DRUG USE FOR UNKNOWN INDICATION
     Dosage: TEXT:1 TABLET ONE TIME
     Route: 048
     Dates: start: 20100310, end: 20100310

REACTIONS (1)
  - MUSCLE SPASMS [None]
